FAERS Safety Report 9319761 (Version 1)
Quarter: 2013Q2

REPORT INFORMATION
  Report Type: Spontaneous
  Country: US (occurrence: None)
  Receive Date: 20130529
  Receipt Date: 20130529
  Transmission Date: 20140414
  Serious: No
  Sender: FDA-Public Use
  Company Number: None

PATIENT
  Age: 69 Year
  Sex: Female
  Weight: 54.89 kg

DRUGS (6)
  1. LASOPRAZOLE [Suspect]
     Indication: DYSPEPSIA
     Route: 048
     Dates: start: 20121101, end: 20130509
  2. VITAMIN D [Concomitant]
  3. SYNTHROID [Concomitant]
  4. VITAMIN D 12 [Concomitant]
  5. SIMVASTATIN [Concomitant]
  6. LIPITOR [Concomitant]

REACTIONS (6)
  - Abdominal pain upper [None]
  - Abdominal discomfort [None]
  - Fatigue [None]
  - Heart rate increased [None]
  - Panic attack [None]
  - Tremor [None]
